FAERS Safety Report 4372090-6 (Version None)
Quarter: 2004Q2

REPORT INFORMATION
  Report Type: 
  Country: None (occurrence: None)
  Receive Date: 20040601
  Receipt Date: 20040514
  Transmission Date: 20050107
  Serious: Yes (Hospitalization, Other)
  Sender: FDA-Public Use
  Company Number: USA-2003-0003891

PATIENT
  Age: 48 Year
  Sex: Male
  Weight: 124.7 kg

DRUGS (33)
  1. OXYCONTIN [Suspect]
     Indication: PAIN
     Dosage: SEE IMAGE
     Route: 048
     Dates: start: 19990901, end: 19990914
  2. OXYCONTIN [Suspect]
     Indication: PAIN
     Dosage: SEE IMAGE
     Route: 048
     Dates: start: 19990914, end: 20000211
  3. OXYCONTIN [Suspect]
     Indication: PAIN
     Dosage: SEE IMAGE
     Route: 048
     Dates: start: 20000211
  4. OXYCONTIN [Suspect]
     Indication: PAIN
     Dosage: SEE IMAGE
     Route: 048
     Dates: start: 20010701
  5. OXYCODONE HCL [Concomitant]
  6. XANAX [Concomitant]
  7. LORCET-HD [Concomitant]
  8. GLUCOPHAGE [Concomitant]
  9. GLUCOTROL [Concomitant]
  10. ACCUPRIL [Concomitant]
  11. DILTIAZEM [Concomitant]
  12. HYTRIN [Concomitant]
  13. VIAGRA [Concomitant]
  14. VIOXX [Concomitant]
  15. KEFLEX [Concomitant]
  16. ENTEX LA (GUAIFENESIN, PHENYLPROPANOLAMINE HYDROCHLORIDE) [Concomitant]
  17. AFRIN NASAL SPRAY (OXYMETAZOLINE HYDROCHLORIDE) [Concomitant]
  18. REMERON [Concomitant]
  19. ZYPREXA [Concomitant]
  20. LIPITOR [Concomitant]
  21. TIAZAC [Concomitant]
  22. LOPID [Concomitant]
  23. CYCLOBENZAPRINE HCL [Concomitant]
  24. METHYLPREDNISOLONE [Concomitant]
  25. PROPOXYPHENE [Concomitant]
  26. PAXIL [Concomitant]
  27. CELEXA [Concomitant]
  28. PERCOCET [Concomitant]
  29. ZITHROMAX [Concomitant]
  30. ZIPRASIDONE (ZIPRASIDONE) [Concomitant]
  31. FASTIN [Concomitant]
  32. INSULIN, REGULAR (INSULIN) [Concomitant]
  33. AMBIEN [Concomitant]

REACTIONS (29)
  - AFFECT LABILITY [None]
  - ANGINA UNSTABLE [None]
  - BLISTER [None]
  - CHEST DISCOMFORT [None]
  - DECREASED APPETITE [None]
  - DEPRESSED MOOD [None]
  - DISTURBANCE IN ATTENTION [None]
  - DRUG ABUSER [None]
  - DRUG DEPENDENCE [None]
  - DRUG WITHDRAWAL SYNDROME [None]
  - DYSPNOEA [None]
  - EAR INFECTION [None]
  - EMOTIONAL DISTRESS [None]
  - GROIN PAIN [None]
  - HALLUCINATION, AUDITORY [None]
  - HEADACHE [None]
  - INADEQUATE ANALGESIA [None]
  - INTENTIONAL OVERDOSE [None]
  - MAJOR DEPRESSION [None]
  - MENTAL DISORDER [None]
  - MULTIPLE DRUG OVERDOSE [None]
  - NON-CARDIAC CHEST PAIN [None]
  - OEDEMA PERIPHERAL [None]
  - POLLAKIURIA [None]
  - SEXUAL DYSFUNCTION [None]
  - SINUSITIS [None]
  - SLEEP DISORDER [None]
  - SUICIDAL IDEATION [None]
  - SUICIDE ATTEMPT [None]
